FAERS Safety Report 6661926-1 (Version None)
Quarter: 2010Q1

REPORT INFORMATION
  Report Type: 
  Country: None (occurrence: None)
  Receive Date: 20100331
  Receipt Date: 20091020
  Transmission Date: 20100710
  Serious: No
  Sender: FDA-Public Use
  Company Number: US-BRISTOL-MYERS SQUIBB COMPANY-14810972

PATIENT
  Age: 60 Year
  Sex: Male

DRUGS (3)
  1. ERBITUX [Suspect]
     Indication: TONGUE CARCINOMA STAGE IV
     Dosage: LOADING DOSE: 800MG (400/M2),2ND DOSE 10SEP,17SEP,24SEP
     Route: 042
     Dates: start: 20090903
  2. RADIATION THERAPY [Suspect]
     Indication: HEAD AND NECK CANCER
  3. MINOCYCLINE HCL [Concomitant]
     Indication: PROPHYLAXIS

REACTIONS (2)
  - MUCOSAL INFLAMMATION [None]
  - SKIN DISCOLOURATION [None]
